FAERS Safety Report 6014450-3 (Version None)
Quarter: 2008Q4

REPORT INFORMATION
  Report Type: 
  Country: None (occurrence: None)
  Receive Date: 20081219
  Receipt Date: 20080624
  Transmission Date: 20090506
  Serious: No
  Sender: FDA-Public Use
  Company Number: A0734563A

PATIENT
  Age: 76 Year
  Sex: Male

DRUGS (2)
  1. AVODART [Suspect]
     Indication: URINARY RETENTION
     Route: 048
     Dates: start: 20060101, end: 20060101
  2. ZOCOR [Concomitant]

REACTIONS (1)
  - BREAST ENLARGEMENT [None]
